FAERS Safety Report 6655207-X (Version None)
Quarter: 2010Q1

REPORT INFORMATION
  Report Type: 
  Country: None (occurrence: None)
  Receive Date: 20100317
  Receipt Date: 20100209
  Transmission Date: 20100710
  Serious: No
  Sender: FDA-Public Use
  Company Number: DSA_42589_2010

PATIENT
  Sex: Female

DRUGS (1)
  1. XENAZINE [Suspect]
     Indication: DRUG USE FOR UNKNOWN INDICATION
     Dosage: 12.5 MG TID ORAL
     Route: 048
     Dates: start: 20090910

REACTIONS (3)
  - DEPRESSED MOOD [None]
  - FATIGUE [None]
  - PRURITUS [None]
